FAERS Safety Report 10928047 (Version 1)
Quarter: 2015Q1

REPORT INFORMATION
  Report Type: Spontaneous
  Country: None (occurrence: None)
  Receive Date: 20150317
  Receipt Date: 20150317
  Transmission Date: 20150721
  Serious: No
  Sender: FDA-Public Use
  Company Number: None

PATIENT
  Age: 21 Year
  Sex: Female

DRUGS (3)
  1. BACTRIM DS [Suspect]
     Active Substance: SULFAMETHOXAZOLE\TRIMETHOPRIM
     Indication: SINUSITIS
  2. FLONASE [Concomitant]
     Active Substance: FLUTICASONE PROPIONATE
  3. SEASONIQUE [Concomitant]
     Active Substance: ETHINYL ESTRADIOL\LEVONORGESTREL

REACTIONS (4)
  - Vulvovaginal pruritus [None]
  - Rash pruritic [None]
  - Vulvovaginal swelling [None]
  - Fungal infection [None]

NARRATIVE: CASE EVENT DATE: 20140325
